FAERS Safety Report 21740010 (Version 1)
Quarter: 2022Q4

REPORT INFORMATION
  Report Type: Spontaneous
  Country: US (occurrence: US)
  Receive Date: 20221216
  Receipt Date: 20221216
  Transmission Date: 20230113
  Serious: No
  Sender: FDA-Public Use
  Company Number: US-REGENERON PHARMACEUTICALS, INC.-2022-081358

PATIENT
  Sex: Female

DRUGS (2)
  1. EYLEA [Suspect]
     Active Substance: AFLIBERCEPT
     Indication: Retinal vein occlusion
     Dosage: 1 {DF}; 1 PER MONTH (FORMULATION: INJECTION) (TOTAL NUMBER OF 3 INJECTIONS)
     Dates: start: 202104
  2. EYLEA [Suspect]
     Active Substance: AFLIBERCEPT
     Indication: Eye oedema
     Dosage: 2 MG EVERY 4-8 WEEKS INTO LEFT EYE (FORMULATION: INJECTION)
     Dates: start: 20220617

REACTIONS (2)
  - Visual impairment [Recovered/Resolved]
  - Off label use [Unknown]

NARRATIVE: CASE EVENT DATE: 20210401
